FAERS Safety Report 8543176-7 (Version None)
Quarter: 2012Q3

REPORT INFORMATION
  Report Type: 
  Country: None (occurrence: None)
  Receive Date: 20120727
  Receipt Date: 20120718
  Transmission Date: 20120928
  Serious: Yes (Other)
  Sender: FDA-Public Use
  Company Number: US-JNJFOC-20120711986

PATIENT
  Sex: Female

DRUGS (2)
  1. TYLENOL [Suspect]
     Indication: FIBROMYALGIA
     Route: 048
  2. TYLENOL [Suspect]
     Route: 048

REACTIONS (1)
  - LIVER TRANSPLANT [None]
